FAERS Safety Report 6544595-0 (Version None)
Quarter: 2010Q1

REPORT INFORMATION
  Report Type: 
  Country: None (occurrence: None)
  Receive Date: 20100121
  Receipt Date: 20100109
  Transmission Date: 20100710
  Serious: Yes (Other)
  Sender: FDA-Public Use
  Company Number: PHHY2010US01522

PATIENT
  Sex: Female

DRUGS (2)
  1. RECLAST [Suspect]
     Route: 042
  2. RECLAST [Suspect]
     Route: 042

REACTIONS (3)
  - BONE DISORDER [None]
  - BONE FRAGMENTATION [None]
  - DRUG INEFFECTIVE [None]
